FAERS Safety Report 20997284 (Version 1)
Quarter: 2022Q2

REPORT INFORMATION
  Report Type: Report from Study
  Country: CA (occurrence: CA)
  Receive Date: 20220623
  Receipt Date: 20220623
  Transmission Date: 20220721
  Serious: Yes (Other)
  Sender: FDA-Public Use
  Company Number: CA-TAKEDA-2022TUS040734

PATIENT
  Age: 67 Year
  Sex: Male

DRUGS (6)
  1. HUMAN IMMUNOGLOBULIN G [Suspect]
     Active Substance: HUMAN IMMUNOGLOBULIN G
     Indication: Primary immunodeficiency syndrome
     Dosage: 35 GRAM, 1/WEEK
     Route: 050
     Dates: start: 20191217
  2. MESTINON [Concomitant]
     Active Substance: PYRIDOSTIGMINE BROMIDE
  3. VITAMIN D [Concomitant]
     Active Substance: VITAMIN D NOS
  4. METFORMIN [Concomitant]
     Active Substance: METFORMIN HYDROCHLORIDE
  5. HEART [Concomitant]
  6. AZATHIOPRINE [Concomitant]
     Active Substance: AZATHIOPRINE

REACTIONS (1)
  - Disability [Not Recovered/Not Resolved]
